FAERS Safety Report 5709041-5 (Version None)
Quarter: 2008Q2

REPORT INFORMATION
  Report Type: 
  Country: None (occurrence: None)
  Receive Date: 20080416
  Receipt Date: 20080416
  Transmission Date: 20081010
  Serious: Yes (Hospitalization)
  Sender: FDA-Public Use
  Company Number: None

PATIENT
  Age: 54 Year
  Sex: Male
  Weight: 102 kg

DRUGS (8)
  1. QUINAPRIL [Suspect]
     Indication: HYPERTENSION
     Dosage: 10MG DAILY PO  (DURATION: PAST MONTH)
     Route: 048
  2. ACCUPRIL [Concomitant]
  3. ISENTRESS [Concomitant]
  4. ALDACTONE [Concomitant]
  5. LIPITOR [Concomitant]
  6. AMIODARONE HCL [Concomitant]
  7. TRUVADA [Concomitant]
  8. COREG [Concomitant]

REACTIONS (4)
  - ANGIOEDEMA [None]
  - FACE OEDEMA [None]
  - LIP SWELLING [None]
  - RASH MACULAR [None]
